FAERS Safety Report 10182964 (Version 1)
Quarter: 2014Q2

REPORT INFORMATION
  Report Type: Spontaneous
  Country: US (occurrence: US)
  Receive Date: 20140520
  Receipt Date: 20140520
  Transmission Date: 20141212
  Serious: No
  Sender: FDA-Public Use
  Company Number: US-PFIZER INC-2014135363

PATIENT
  Age: 78 Year
  Sex: Female
  Weight: 68 kg

DRUGS (2)
  1. PROTONIX [Suspect]
     Dosage: 40 MG, 1X/DAY
     Route: 048
     Dates: end: 201405
  2. PROTONIX [Suspect]
     Dosage: 20 MG, 1X/DAY
     Route: 048
     Dates: start: 201405

REACTIONS (3)
  - Gastrooesophageal reflux disease [Unknown]
  - Hypoaesthesia oral [Unknown]
  - Paraesthesia [Unknown]
